FAERS Safety Report 7347273-3 (Version None)
Quarter: 2011Q1

REPORT INFORMATION
  Report Type: 
  Country: None (occurrence: None)
  Receive Date: 20110311
  Receipt Date: 20110309
  Transmission Date: 20110831
  Serious: Yes (Other)
  Sender: FDA-Public Use
  Company Number: US-PFIZER INC-2010153781

PATIENT
  Sex: Male

DRUGS (2)
  1. CHANTIX [Suspect]
     Indication: SMOKING CESSATION THERAPY
     Dosage: UNK
     Route: 048
     Dates: start: 20100901, end: 20100101
  2. CHANTIX [Suspect]
     Dosage: UNK
     Dates: start: 20100101, end: 20101119

REACTIONS (4)
  - PARANOIA [None]
  - NEGATIVE THOUGHTS [None]
  - ABNORMAL BEHAVIOUR [None]
  - ANXIETY [None]
